FAERS Safety Report 14173775 (Version 2)
Quarter: 2018Q2

REPORT INFORMATION
  Report Type: Report from Study
  Country: JP (occurrence: JP)
  Receive Date: 20171109
  Receipt Date: 20180514
  Transmission Date: 20180711
  Serious: Yes (Other)
  Sender: FDA-Public Use
  Company Number: PHJP2017JP032643

PATIENT
  Age: 73 Year
  Sex: Female

DRUGS (4)
  1. ZYKADIA [Suspect]
     Active Substance: CERITINIB
     Dosage: 300 MG, QD
     Route: 048
     Dates: start: 20160826, end: 20160908
  2. ZYKADIA [Suspect]
     Active Substance: CERITINIB
     Dosage: 450 MG, QD
     Route: 048
     Dates: start: 20160815, end: 20160825
  3. ZYKADIA [Suspect]
     Active Substance: CERITINIB
     Dosage: 300 MG, QOD
     Route: 048
     Dates: start: 20160923, end: 20170220
  4. ZYKADIA [Suspect]
     Active Substance: CERITINIB
     Indication: NON-SMALL CELL LUNG CANCER STAGE IV
     Dosage: 750 MG, QD
     Route: 048
     Dates: start: 20160805, end: 20160808

REACTIONS (6)
  - Non-small cell lung cancer stage IV [Unknown]
  - Malignant neoplasm progression [Unknown]
  - Liver disorder [Recovered/Resolved]
  - Diarrhoea [Recovered/Resolved]
  - Renal disorder [Recovering/Resolving]
  - Vomiting [Recovered/Resolved]

NARRATIVE: CASE EVENT DATE: 20160805
